FAERS Safety Report 10743889 (Version 1)
Quarter: 2015Q1

REPORT INFORMATION
  Report Type: Report from Study
  Country: US (occurrence: US)
  Receive Date: 20150128
  Receipt Date: 20150128
  Transmission Date: 20150721
  Serious: Yes (Hospitalization)
  Sender: FDA-Public Use
  Company Number: US-BIOGENIDEC-2015BI007821

PATIENT
  Sex: Female

DRUGS (1)
  1. TYSABRI [Suspect]
     Active Substance: NATALIZUMAB
     Indication: MULTIPLE SCLEROSIS
     Route: 042
     Dates: start: 20140120

REACTIONS (9)
  - Oxygen saturation decreased [Recovered/Resolved]
  - Pyrexia [Recovered/Resolved]
  - Ligament rupture [Unknown]
  - Back pain [Recovered/Resolved]
  - Arthralgia [Unknown]
  - Pneumonia [Recovered/Resolved]
  - Tendon rupture [Unknown]
  - Chest pain [Recovered/Resolved]
  - Gait disturbance [Unknown]
